FAERS Safety Report 8386838-7 (Version None)
Quarter: 2012Q2

REPORT INFORMATION
  Report Type: 
  Country: None (occurrence: None)
  Receive Date: 20120525
  Receipt Date: 20120521
  Transmission Date: 20120825
  Serious: Yes (Other)
  Sender: FDA-Public Use
  Company Number: VE-PFIZER INC-2012124624

PATIENT
  Sex: Male

DRUGS (1)
  1. CADUET [Suspect]
     Dosage: [AMLODIPINE BESILATE 5 MG] / [ATORVASTATIN CALCIUM 10 MG], UNK

REACTIONS (2)
  - LARYNGEAL DISORDER [None]
  - VOCAL CORD DISORDER [None]
